FAERS Safety Report 4983209-8 (Version None)
Quarter: 2006Q2

REPORT INFORMATION
  Report Type: 
  Country: None (occurrence: None)
  Receive Date: 20060419
  Receipt Date: 20060404
  Transmission Date: 20061013
  Serious: Yes (Death, Other)
  Sender: FDA-Public Use
  Company Number: 2006-BP-03939RO

PATIENT
  Age: 30 Year
  Sex: Male
  Weight: 73 kg

DRUGS (11)
  1. MIDAZOLAM HCL [Suspect]
     Indication: INDUCTION OF ANAESTHESIA
     Dosage: 2 MG X ONCE (2 MG)
  2. FENTANYL [Suspect]
     Indication: INDUCTION OF ANAESTHESIA
     Dosage: 200 MCG X ONCE (200 MCG)
  3. ATRACURIUM BESYLATE [Suspect]
     Indication: INDUCTION OF ANAESTHESIA
     Dosage: 35 MG TOTAL DOSE
  4. PROPOFOL [Suspect]
     Indication: INDUCTION OF ANAESTHESIA
     Dosage: 200 MG TOTAL DOSE
  5. LIDOCAINE [Suspect]
     Indication: INDUCTION OF ANAESTHESIA
     Dosage: 20 MG X ONCE
  6. SEVOFLURANE [Suspect]
     Indication: WHEEZING
     Dosage: 2 MAC
  7. HYDROCORTISONE [Suspect]
     Indication: WHEEZING
     Dosage: 200 MG X ONCE, IV
     Route: 042
  8. DEXAMETHASONE [Concomitant]
  9. DIAZEPAM [Concomitant]
  10. DICLOFENAC (DICLOFENAC) [Concomitant]
  11. TRAMADOL HCL [Concomitant]

REACTIONS (34)
  - ANAESTHETIC COMPLICATION [None]
  - ANAPHYLACTIC REACTION [None]
  - BLOOD CHLORIDE INCREASED [None]
  - BLOOD PH DECREASED [None]
  - BLOOD PRESSURE INCREASED [None]
  - BRADYCARDIA [None]
  - CIRCULATORY COLLAPSE [None]
  - CORONARY ARTERY STENOSIS [None]
  - COUGH [None]
  - CYANOSIS [None]
  - DYSKINESIA [None]
  - ELECTROCARDIOGRAM QRS COMPLEX PROLONGED [None]
  - ELECTROMECHANICAL DISSOCIATION [None]
  - EOSINOPHIL COUNT INCREASED [None]
  - GASTROINTESTINAL HAEMORRHAGE [None]
  - HAEMATOCRIT DECREASED [None]
  - HAEMOGLOBIN DECREASED [None]
  - HEPATIC CONGESTION [None]
  - HYPERSENSITIVITY [None]
  - INJURY [None]
  - OXYGEN SATURATION DECREASED [None]
  - PALLOR [None]
  - PLATELET COUNT DECREASED [None]
  - PNEUMOTHORAX [None]
  - PO2 DECREASED [None]
  - PULSE ABSENT [None]
  - RENAL TUBULAR NECROSIS [None]
  - SUPRAVENTRICULAR TACHYCARDIA [None]
  - THERAPY NON-RESPONDER [None]
  - TRYPTASE INCREASED [None]
  - VENTRICULAR EXTRASYSTOLES [None]
  - VENTRICULAR FIBRILLATION [None]
  - WHEEZING [None]
  - WHITE BLOOD CELL COUNT INCREASED [None]
